FAERS Safety Report 7587111-7 (Version None)
Quarter: 2011Q3

REPORT INFORMATION
  Report Type: 
  Country: None (occurrence: None)
  Receive Date: 20110701
  Receipt Date: 20110627
  Transmission Date: 20111222
  Serious: Yes (Death)
  Sender: FDA-Public Use
  Company Number: PHHY2011US53433

PATIENT
  Sex: Female

DRUGS (5)
  1. TYLENOL-500 [Concomitant]
     Dosage: PER MONTH
  2. MORPHINE [Concomitant]
     Dosage: UNK
  3. ATWAN [Concomitant]
     Dosage: UNK
  4. RECLAST [Suspect]
     Dosage: 5 MG, UNK
     Route: 042
     Dates: start: 20091120
  5. RECLAST [Suspect]
     Dosage: 5 MG, UNK
     Route: 042
     Dates: start: 20101123

REACTIONS (3)
  - FALL [None]
  - HEART RATE INCREASED [None]
  - DEATH [None]
